FAERS Safety Report 5633024-7 (Version None)
Quarter: 2008Q1

REPORT INFORMATION
  Report Type: 
  Country: None (occurrence: None)
  Receive Date: 20080214
  Receipt Date: 20080204
  Transmission Date: 20080703
  Serious: Yes (Other)
  Sender: FDA-Public Use
  Company Number: 2007-02429

PATIENT
  Age: 73 Year
  Sex: Male
  Weight: 53 kg

DRUGS (17)
  1. VELCADE [Suspect]
     Indication: MULTIPLE MYELOMA
     Dosage: 1.60 MG, INTRAVENOUS
     Route: 042
     Dates: start: 20070501, end: 20070611
  2. DEXAMETHASONE TAB [Suspect]
     Indication: MULTIPLE MYELOMA
     Dosage: 40.00 MG, INTRAVENOUS
     Route: 042
     Dates: start: 20070501, end: 20070612
  3. MEIACT(CEFDITOREN PIVOXIL) [Suspect]
     Indication: PROPHYLAXIS
     Dosage: 300.00 MG, ORAL
     Route: 048
     Dates: start: 20070621, end: 20070625
  4. BAKTAR(SULFAMETHOXAZOLE, TRIMETHOPRIM) TABLET [Suspect]
     Indication: PROPHYLAXIS
     Dosage: 1.00 DF, ORAL
     Route: 048
  5. ITRACONAZOLE [Suspect]
     Indication: PROPHYLAXIS
     Dosage: 200.00 MG, ORAL
     Route: 048
     Dates: start: 20070529, end: 20070724
  6. DECADRON [Concomitant]
  7. RABEPRAZOLE SODIUM [Concomitant]
  8. AMLODIPINE BESYLATE [Concomitant]
  9. BASEN (VOGLIBOSE) [Concomitant]
  10. AMARYL [Concomitant]
  11. TAMSULOSIN HCL [Concomitant]
  12. ZOMETA [Concomitant]
  13. FLOMOX (CEFCAPENE PIVOXIL HYDROCHLORIDE) [Concomitant]
  14. ROCEPHIN [Concomitant]
  15. ASPARA K (ASPARTATE POTASSIUM) [Concomitant]
  16. SOLACET [Concomitant]
  17. GLUCOSAN [Concomitant]

REACTIONS (8)
  - CRYPTOGENIC ORGANISING PNEUMONIA [None]
  - DISEASE PROGRESSION [None]
  - DIZZINESS [None]
  - FUNGUS CULTURE POSITIVE [None]
  - INAPPROPRIATE ANTIDIURETIC HORMONE SECRETION [None]
  - INTERSTITIAL LUNG DISEASE [None]
  - ORTHOSTATIC HYPOTENSION [None]
  - PNEUMONIA BACTERIAL [None]
